FAERS Safety Report 4733528-5 (Version None)
Quarter: 2005Q3

REPORT INFORMATION
  Report Type: 
  Country: None (occurrence: None)
  Receive Date: 20050729
  Receipt Date: 20050714
  Transmission Date: 20060218
  Serious: Yes (Other)
  Sender: FDA-Public Use
  Company Number: 430012M05DEU

PATIENT
  Age: 55 Year
  Sex: Female

DRUGS (2)
  1. RALENOVA (MOTOXANTRONE HYDROCHLORIDE) [Suspect]
     Indication: MULTIPLE SCLEROSIS
     Dosage: SEE IMAGE
     Dates: start: 20040201, end: 20040401
  2. RALENOVA (MOTOXANTRONE HYDROCHLORIDE) [Suspect]
     Indication: MULTIPLE SCLEROSIS
     Dosage: SEE IMAGE
     Dates: end: 20040501

REACTIONS (1)
  - SYNOVIAL SARCOMA METASTATIC [None]
